FAERS Safety Report 18724399 (Version 1)
Quarter: 2021Q1

REPORT INFORMATION
  Report Type: Spontaneous
  Country: US (occurrence: US)
  Receive Date: 20210110
  Receipt Date: 20210110
  Transmission Date: 20210419
  Serious: No
  Sender: FDA-Public Use
  Company Number: None

PATIENT
  Age: 57 Year
  Sex: Male
  Weight: 76.5 kg

DRUGS (11)
  1. AIMOVIG [Suspect]
     Active Substance: ERENUMAB-AOOE
     Indication: HEADACHE
     Dosage: ?          QUANTITY:1 INJECTION(S);OTHER FREQUENCY:1 PER 3 MONTHS;?
     Route: 058
     Dates: start: 20191118, end: 20191119
  2. CLONIDINE. [Concomitant]
     Active Substance: CLONIDINE
  3. MULTIPLE VITAMINS?MINERALS [Concomitant]
  4. MAGNESIUM CITRATE. [Concomitant]
     Active Substance: MAGNESIUM CITRATE
  5. DEXTRIN\WHEAT [Concomitant]
     Active Substance: ICODEXTRIN\WHEAT
  6. FLUTICASONE. [Concomitant]
     Active Substance: FLUTICASONE
  7. ERGOCALCIFEROL. [Concomitant]
     Active Substance: ERGOCALCIFEROL
  8. LORATADINE. [Concomitant]
     Active Substance: LORATADINE
  9. LACTOBACILLUS RHAMNOSUS [Concomitant]
     Active Substance: LACTOBACILLUS RHAMNOSUS
  10. OXYCODONE?ACETAMINOPHEN [Concomitant]
     Active Substance: ACETAMINOPHEN\OXYCODONE HYDROCHLORIDE
  11. ARTIFICIAL TEARS [Concomitant]
     Active Substance: GLYCERIN\HYPROMELLOSES\POLYETHYLENE GLYCOL 400

REACTIONS (4)
  - Headache [None]
  - Sleep disorder [None]
  - Joint range of motion decreased [None]
  - Arthralgia [None]

NARRATIVE: CASE EVENT DATE: 20191118
